FAERS Safety Report 7147950-3 (Version None)
Quarter: 2010Q4

REPORT INFORMATION
  Report Type: 
  Country: None (occurrence: None)
  Receive Date: 20101206
  Receipt Date: 20101206
  Transmission Date: 20110411
  Serious: Yes (Hospitalization, Disabling)
  Sender: FDA-Public Use
  Company Number: None

PATIENT
  Age: 34 Year
  Sex: Female
  Weight: 78.0187 kg

DRUGS (1)
  1. SAVELLA [Suspect]
     Indication: FIBROMYALGIA
     Dosage: 50 MG 2 TIMES A DAY PO
     Route: 048
     Dates: start: 20100501, end: 20100801

REACTIONS (8)
  - BLOOD PRESSURE INCREASED [None]
  - CONSTIPATION [None]
  - DEPRESSION [None]
  - FEELING COLD [None]
  - MIDDLE INSOMNIA [None]
  - PALPITATIONS [None]
  - PANIC ATTACK [None]
  - SUICIDAL IDEATION [None]
